FAERS Safety Report 10960354 (Version 1)
Quarter: 2015Q1

REPORT INFORMATION
  Report Type: Spontaneous
  Country: KR (occurrence: None)
  Receive Date: 20150325
  Receipt Date: 20150325
  Transmission Date: 20150721
  Serious: Yes (Other)
  Sender: FDA-Public Use
  Company Number: FK201501336

PATIENT
  Age: 46 Year
  Sex: Male

DRUGS (10)
  1. FLUOROURACIL (MANUFACTURER UNKNOWN) (FLUOROURACIL) (FLUOROURACIL) [Suspect]
     Active Substance: FLUOROURACIL
     Indication: METASTASES TO LIVER
     Route: 041
  2. TAXOL [Suspect]
     Active Substance: PACLITAXEL
     Indication: ADENOCARCINOMA GASTRIC
  3. FLUOROURACIL (MANUFACTURER UNKNOWN) (FLUOROURACIL) (FLUOROURACIL) [Suspect]
     Active Substance: FLUOROURACIL
     Indication: ADENOCARCINOMA GASTRIC
     Route: 041
  4. BEVACIZUMAB (BEVACIZUMAB) (BEVACIZUMAB) [Suspect]
     Active Substance: BEVACIZUMAB
     Indication: METASTASES TO LIVER
  5. BEVACIZUMAB (BEVACIZUMAB) (BEVACIZUMAB) [Suspect]
     Active Substance: BEVACIZUMAB
     Indication: ADENOCARCINOMA GASTRIC
  6. CAPECITABINE. [Concomitant]
     Active Substance: CAPECITABINE
  7. LEUCOVORIN CALCIUM (MANUFACTURER UNKNOWN) (LEUCOVORIN CALCIUM) (LEUCOVORIN CALCIUM) [Suspect]
     Active Substance: LEUCOVORIN CALCIUM
     Indication: ADENOCARCINOMA GASTRIC
  8. LEUCOVORIN CALCIUM (MANUFACTURER UNKNOWN) (LEUCOVORIN CALCIUM) (LEUCOVORIN CALCIUM) [Suspect]
     Active Substance: LEUCOVORIN CALCIUM
     Indication: METASTASES TO LIVER
  9. CISPLATIN. [Concomitant]
     Active Substance: CISPLATIN
  10. TAXOL [Suspect]
     Active Substance: PACLITAXEL
     Indication: METASTASES TO LIVER

REACTIONS (5)
  - Malignant neoplasm progression [None]
  - Tooth injury [None]
  - Adenocarcinoma gastric [None]
  - Oral candidiasis [None]
  - Gingival disorder [None]
